FAERS Safety Report 6236334-8 (Version None)
Quarter: 2009Q2

REPORT INFORMATION
  Report Type: 
  Country: None (occurrence: None)
  Receive Date: 20090619
  Receipt Date: 20090608
  Transmission Date: 20091009
  Serious: Yes (Hospitalization, Other)
  Sender: FDA-Public Use
  Company Number: CA-ELI_LILLY_AND_COMPANY-CA200906001855

PATIENT
  Age: 21 Year
  Sex: Female

DRUGS (6)
  1. CYMBALTA [Suspect]
     Dosage: 60 MG, UNK
  2. CYMBALTA [Suspect]
     Dosage: 30 MG, UNK
  3. CYMBALTA [Suspect]
     Dosage: 420 MG, OTHER
  4. LYRICA [Concomitant]
     Dosage: 450 MG, UNK
  5. TOPIMAX [Concomitant]
     Dosage: 25 MG, 2/D
  6. OTHER ANALGESICS AND ANTIPYRETICS [Concomitant]

REACTIONS (3)
  - DIABETIC KETOACIDOSIS [None]
  - INTENTIONAL OVERDOSE [None]
  - URINARY RETENTION [None]
